FAERS Safety Report 7813231-5 (Version None)
Quarter: 2011Q4

REPORT INFORMATION
  Report Type: 
  Country: None (occurrence: None)
  Receive Date: 20111013
  Receipt Date: 20111004
  Transmission Date: 20120403
  Serious: Yes (Congenital Anomaly)
  Sender: FDA-Public Use
  Company Number: JP-ASTRAZENECA-2011SE42654

PATIENT
  Age: 0 Year
  Sex: Male
  Weight: 2 kg

DRUGS (4)
  1. ESTRADIOL [Concomitant]
     Route: 064
  2. MEDROXYPROGESTERONE ACETATE [Concomitant]
     Route: 064
  3. CANDESARTAN CILEXETIL [Suspect]
     Route: 064
  4. TACROLIMUS [Concomitant]

REACTIONS (1)
  - OSTEOGENESIS IMPERFECTA [None]
